FAERS Safety Report 5195546-5 (Version None)
Quarter: 2007Q1

REPORT INFORMATION
  Report Type: 
  Country: None (occurrence: None)
  Receive Date: 20070102
  Receipt Date: 20061219
  Transmission Date: 20070707
  Serious: Yes (Other)
  Sender: FDA-Public Use
  Company Number: PHBS2006AR19797

PATIENT
  Age: 48 Year
  Sex: Male

DRUGS (2)
  1. MELERIL RETARD [Suspect]
     Route: 065
  2. TEGRETOL 400 LC [Suspect]
     Route: 065

REACTIONS (2)
  - CONVULSION [None]
  - MUSCULAR WEAKNESS [None]
